FAERS Safety Report 17519215 (Version 4)
Quarter: 2020Q2

REPORT INFORMATION
  Report Type: Report from Study
  Country: CN (occurrence: CN)
  Receive Date: 20200309
  Receipt Date: 20200513
  Transmission Date: 20200713
  Serious: Yes (Hospitalization)
  Sender: FDA-Public Use
  Company Number: NVSC2020CN064454

PATIENT
  Age: 37 Year
  Sex: Female
  Weight: 74 kg

DRUGS (4)
  1. TRAMADOL. [Concomitant]
     Active Substance: TRAMADOL
     Indication: PAIN
     Dosage: UNK
     Route: 065
     Dates: start: 20200305, end: 20200305
  2. RIBOCICLIB. [Suspect]
     Active Substance: RIBOCICLIB
     Indication: BREAST CANCER
     Dosage: 600 MG, OTHER
     Route: 048
     Dates: start: 20190821, end: 20200304
  3. RIBOCICLIB. [Suspect]
     Active Substance: RIBOCICLIB
     Dosage: 600 MG, OTHER
     Route: 048
     Dates: start: 20200312
  4. COMPARATOR LETROZOLE [Suspect]
     Active Substance: LETROZOLE
     Indication: BREAST CANCER
     Dosage: 2.5 MG, QD
     Route: 048
     Dates: start: 20190821

REACTIONS (1)
  - Pneumonia [Recovered/Resolved]

NARRATIVE: CASE EVENT DATE: 20200305
